FAERS Safety Report 20084951 (Version 7)
Quarter: 2022Q3

REPORT INFORMATION
  Report Type: Report from Study
  Country: AU (occurrence: AU)
  Receive Date: 20211118
  Receipt Date: 20220920
  Transmission Date: 20221027
  Serious: Yes (Hospitalization, Other)
  Sender: FDA-Public Use
  Company Number: AU-NOVARTISPH-NVSC2021AU247801

PATIENT
  Age: 64 Year
  Sex: Female

DRUGS (2)
  1. MAYZENT [Suspect]
     Active Substance: SIPONIMOD
     Indication: Secondary progressive multiple sclerosis
     Dosage: 2 MG, QD
     Route: 048
     Dates: start: 20211014
  2. VALIUM [Suspect]
     Active Substance: DIAZEPAM
     Indication: Product used for unknown indication
     Dosage: UNK
     Route: 065

REACTIONS (21)
  - Urinary tract infection [Unknown]
  - Fall [Unknown]
  - Balance disorder [Unknown]
  - Mobility decreased [Unknown]
  - Foot fracture [Unknown]
  - Vertigo [Unknown]
  - Multiple sclerosis relapse [Unknown]
  - Seizure [Unknown]
  - Asthenia [Unknown]
  - Hypertension [Unknown]
  - SARS-CoV-2 test positive [Unknown]
  - Cognitive disorder [Unknown]
  - Thinking abnormal [Unknown]
  - Confusional state [Unknown]
  - Pyrexia [Unknown]
  - Tongue ulceration [Unknown]
  - Anger [Unknown]
  - Pharyngeal ulceration [Unknown]
  - Malaise [Unknown]
  - Overdose [Unknown]
  - Product dose omission issue [Unknown]

NARRATIVE: CASE EVENT DATE: 20211019
